FAERS Safety Report 9272615 (Version 2)
Quarter: 2013Q2

REPORT INFORMATION
  Report Type: Report from Study
  Country: CA (occurrence: CA)
  Receive Date: 20130506
  Receipt Date: 20130604
  Transmission Date: 20140414
  Serious: Yes (Other)
  Sender: FDA-Public Use
  Company Number: CA-ABBOTT-13P-028-1083466-00

PATIENT
  Sex: Male
  Weight: 80 kg

DRUGS (2)
  1. HUMIRA [Suspect]
     Indication: PSORIATIC ARTHROPATHY
     Route: 058
     Dates: start: 20110430, end: 201105
  2. METHOTREXATE [Concomitant]
     Indication: PRODUCT USED FOR UNKNOWN INDICATION
     Dosage: 20 (UNSPECIFIED)
     Route: 058
     Dates: start: 2011, end: 201112

REACTIONS (5)
  - Polymyositis [Unknown]
  - Arthritis [Unknown]
  - Paralysis [Unknown]
  - Abasia [Unknown]
  - Immune system disorder [Unknown]
